FAERS Safety Report 12143162 (Version 1)
Quarter: 2016Q1

REPORT INFORMATION
  Report Type: Spontaneous
  Country: US (occurrence: US)
  Receive Date: 20160304
  Receipt Date: 20160304
  Transmission Date: 20160526
  Serious: No
  Sender: FDA-Public Use
  Company Number: US-ASTRAZENECA-2016SE21986

PATIENT
  Sex: Female

DRUGS (1)
  1. NEXIUM 24HR [Suspect]
     Active Substance: ESOMEPRAZOLE MAGNESIUM
     Route: 048
     Dates: start: 201601

REACTIONS (6)
  - Gastrooesophageal reflux disease [Unknown]
  - Drug effect incomplete [Unknown]
  - Hiatus hernia [Unknown]
  - Product packaging issue [Unknown]
  - Poor quality drug administered [Unknown]
  - Product use issue [Unknown]
